FAERS Safety Report 25046793 (Version 1)
Quarter: 2025Q1

REPORT INFORMATION
  Report Type: Spontaneous
  Country: US (occurrence: US)
  Receive Date: 20250306
  Receipt Date: 20250306
  Transmission Date: 20250408
  Serious: No
  Sender: ITALFARMACO SPA
  Company Number: US-ITALFARMACO SPA-2172375

PATIENT
  Age: 15 Year
  Sex: Male
  Weight: 55.1 kg

DRUGS (2)
  1. DUVYZAT [Suspect]
     Active Substance: GIVINOSTAT
  2. EMFLAZA [Concomitant]
     Active Substance: DEFLAZACORT

REACTIONS (3)
  - Product dose omission issue [Unknown]
  - Asthenia [Unknown]
  - Product availability issue [Unknown]
